FAERS Safety Report 12074464 (Version 1)
Quarter: 2016Q1

REPORT INFORMATION
  Report Type: Spontaneous
  Country: US (occurrence: US)
  Receive Date: 20160212
  Receipt Date: 20160212
  Transmission Date: 20160526
  Serious: Yes (Other)
  Sender: FDA-Public Use
  Company Number: US-AUROBINDO-AUR-APL-2016-01350

PATIENT
  Age: 73 Year
  Sex: Male

DRUGS (2)
  1. CEPHALEXIN 500 MG [Suspect]
     Active Substance: CEPHALEXIN
     Indication: CELLULITIS
     Dosage: 500 MG, 6 HOURS
     Route: 048
  2. CEPHALEXIN 500 MG [Suspect]
     Active Substance: CEPHALEXIN
     Dosage: 500 MG, TWO TIMES A DAY
     Route: 048

REACTIONS (5)
  - Erythema [Recovered/Resolved]
  - Hypersensitivity [Recovered/Resolved]
  - Pruritus [Recovered/Resolved]
  - Eczema [Recovered/Resolved]
  - Dermatitis [Recovered/Resolved]
